FAERS Safety Report 20341240 (Version 1)
Quarter: 2022Q1

REPORT INFORMATION
  Report Type: Spontaneous
  Country: DK (occurrence: DK)
  Receive Date: 20220117
  Receipt Date: 20220117
  Transmission Date: 20220424
  Serious: Yes (Death, Hospitalization)
  Sender: FDA-Public Use
  Company Number: DK-009507513-1808DNK006264

PATIENT
  Age: 66 Year
  Sex: Female

DRUGS (2)
  1. DASABUVIR\OMBITASVIR\PARITAPREVIR\RITONAVIR [Suspect]
     Active Substance: DASABUVIR\OMBITASVIR\PARITAPREVIR\RITONAVIR
     Indication: Chronic hepatitis C
     Dosage: DISCONTINUED ON DAY 18
     Route: 048
  2. RIBAVIRIN [Suspect]
     Active Substance: RIBAVIRIN
     Indication: Chronic hepatitis C
     Dosage: DISCONTINUED ON DAY 8
     Route: 065

REACTIONS (4)
  - Acute hepatic failure [Fatal]
  - Hepatitis cholestatic [Fatal]
  - Hepatic encephalopathy [Unknown]
  - Jaundice [Unknown]
